FAERS Safety Report 6925048-4 (Version None)
Quarter: 2010Q3

REPORT INFORMATION
  Report Type: 
  Country: None (occurrence: None)
  Receive Date: 20100816
  Receipt Date: 20100804
  Transmission Date: 20110219
  Serious: Yes (Death, Life-Threatening)
  Sender: FDA-Public Use
  Company Number: PL-PFIZER INC-2006080548

PATIENT
  Age: 52 Year
  Sex: Male
  Weight: 90 kg

DRUGS (11)
  1. SUNITINIB MALATE [Suspect]
     Indication: RENAL CELL CARCINOMA
     Dosage: 50 MG, 1X/DAY
     Route: 048
     Dates: start: 20060323, end: 20060601
  2. MANNITOL [Concomitant]
     Route: 042
     Dates: start: 20060601, end: 20060618
  3. DEXAVEN [Concomitant]
     Route: 042
     Dates: start: 20060601, end: 20060620
  4. FUROSEMID [Concomitant]
     Route: 042
     Dates: start: 20060612, end: 20060620
  5. FUROSEMID [Concomitant]
     Route: 048
  6. GASEC [Concomitant]
     Route: 048
     Dates: start: 20060601, end: 20060620
  7. PAROXETINE HCL [Concomitant]
     Route: 048
     Dates: end: 20060619
  8. LORAFEN [Concomitant]
     Route: 048
     Dates: start: 20060618, end: 20060619
  9. LERIVON [Concomitant]
     Route: 048
     Dates: end: 20060620
  10. ENARENAL [Concomitant]
     Route: 048
     Dates: start: 20060605, end: 20060620
  11. SIMVASTATIN [Concomitant]
     Route: 048
     Dates: start: 20060613, end: 20060619

REACTIONS (2)
  - PULMONARY THROMBOSIS [None]
  - TOXIC EPIDERMAL NECROLYSIS [None]
